FAERS Safety Report 4848885-9 (Version None)
Quarter: 2005Q4

REPORT INFORMATION
  Report Type: 
  Country: None (occurrence: None)
  Receive Date: 20051208
  Receipt Date: 20051201
  Transmission Date: 20060501
  Serious: Yes (Hospitalization, Disabling)
  Sender: FDA-Public Use
  Company Number: JP-MERCK-0512USA00612

PATIENT
  Age: 70 Year
  Sex: Male

DRUGS (5)
  1. ZOCOR [Suspect]
     Route: 048
     Dates: start: 20051101, end: 20050101
  2. DIOVAN [Suspect]
     Route: 048
     Dates: start: 20051101, end: 20050101
  3. ALEVIATIN [Suspect]
     Route: 065
     Dates: start: 20051101, end: 20050101
  4. ASPIRIN [Suspect]
     Route: 048
     Dates: start: 20051101, end: 20050101
  5. CEROCRAL [Suspect]
     Route: 065
     Dates: start: 20051101, end: 20050101

REACTIONS (2)
  - HYPOAESTHESIA [None]
  - PARALYSIS [None]
